FAERS Safety Report 9105730 (Version 1)
Quarter: 2013Q1

REPORT INFORMATION
  Report Type: Spontaneous
  Country: US (occurrence: US)
  Receive Date: 20130220
  Receipt Date: 20130220
  Transmission Date: 20140127
  Serious: Yes (Other)
  Sender: FDA-Public Use
  Company Number: PHEH2013US004157

PATIENT
  Sex: Male

DRUGS (12)
  1. EXELON PATCH [Suspect]
     Indication: DEMENTIA
     Dosage: 9.5 MG, QD
     Route: 062
  2. PROVIGIL [Concomitant]
     Dosage: UNK UKN, UNK
  3. EFFEXOR [Concomitant]
     Dosage: 150 MG, UNK
  4. LIPITOR [Concomitant]
     Dosage: 20 MG, UNK
  5. FLOMAX ^BOEHRINGER INGELHEIM^ [Concomitant]
     Dosage: 0.4 MG, UNK
  6. VESICARE [Concomitant]
     Dosage: 10 MG, UNK
  7. WELLBUTRIN [Concomitant]
     Dosage: 150 MG, UNK
  8. POTASSIUM [Concomitant]
     Dosage: 20 MG, UNK
  9. CARBIDOPA LEVODOPA [Concomitant]
     Dosage: UNK UKN, UNK
  10. NAMENDA [Concomitant]
     Dosage: UNK UKN, UNK
  11. STROVITE [Concomitant]
     Dosage: UNK UKN, UNK
  12. VERAPAMIL [Concomitant]
     Dosage: 120 MG, UNK

REACTIONS (1)
  - Parkinson^s disease [Unknown]
